FAERS Safety Report 17574016 (Version 1)
Quarter: 2020Q1

REPORT INFORMATION
  Report Type: Report from Study
  Country: DE (occurrence: DE)
  Receive Date: 20200323
  Receipt Date: 20200323
  Transmission Date: 20200409
  Serious: Yes (Death, Hospitalization)
  Sender: FDA-Public Use
  Company Number: DE-ACTELION-A-NJ2020-200520

PATIENT
  Age: 67 Year
  Sex: Male

DRUGS (3)
  1. VENTAVIS [Suspect]
     Active Substance: ILOPROST
     Dosage: 2.5 UNK
     Route: 055
     Dates: start: 202001, end: 202002
  2. VENTAVIS [Suspect]
     Active Substance: ILOPROST
     Dosage: 2.5 UNK
     Route: 055
     Dates: end: 20200303
  3. VENTAVIS [Suspect]
     Active Substance: ILOPROST
     Indication: PULMONARY ARTERIAL HYPERTENSION
     Dosage: 2.5 MCG, 6 ID
     Route: 055
     Dates: start: 20190718, end: 201911

REACTIONS (3)
  - Fluid retention [Recovered/Resolved with Sequelae]
  - Death [Fatal]
  - Oedema peripheral [Recovered/Resolved with Sequelae]
